FAERS Safety Report 6740184-3 (Version None)
Quarter: 2010Q2

REPORT INFORMATION
  Report Type: 
  Country: None (occurrence: None)
  Receive Date: 20100525
  Receipt Date: 20100517
  Transmission Date: 20101027
  Serious: Yes (Death)
  Sender: FDA-Public Use
  Company Number: A0790038A

PATIENT
  Age: 54 Year
  Sex: Female

DRUGS (1)
  1. AVANDIA [Suspect]
     Indication: DIABETES MELLITUS
     Route: 048
     Dates: start: 20010201, end: 20040218

REACTIONS (3)
  - ARTERIOSCLEROSIS [None]
  - ASTHMA [None]
  - CARDIAC FAILURE CONGESTIVE [None]
